FAERS Safety Report 10029391 (Version 1)
Quarter: 2014Q1

REPORT INFORMATION
  Report Type: Spontaneous
  Country: US (occurrence: US)
  Receive Date: 20140322
  Receipt Date: 20140322
  Transmission Date: 20141002
  Serious: Yes (Other)
  Sender: FDA-Public Use
  Company Number: PHHY2014US031779

PATIENT
  Age: 10 Year
  Sex: Female

DRUGS (6)
  1. BLEOMYCIN [Suspect]
     Indication: CHEMOTHERAPY
     Dosage: 15 IU/M2, UNK
  2. VINBLASTINE [Suspect]
     Indication: CHEMOTHERAPY
     Dosage: 6 MG/M2, UNK
  3. CISPLATIN [Suspect]
     Indication: CHEMOTHERAPY
     Dosage: 90 MG/M2, UNK
  4. DOXORUBICIN [Suspect]
     Indication: CHEMOTHERAPY
     Dosage: 45 MG/M2, UNK
  5. ETOPOSIDE [Suspect]
     Indication: CHEMOTHERAPY
     Dosage: 200 MG/M2, UNK
  6. CYCLOPHOSPHAMIDE [Suspect]
     Indication: CHEMOTHERAPY
     Dosage: 1000 MG/M2, UNK

REACTIONS (4)
  - Hypomagnesaemia [Unknown]
  - Bone marrow failure [Unknown]
  - Febrile neutropenia [Unknown]
  - Decreased appetite [Unknown]
